FAERS Safety Report 23741363 (Version 1)
Quarter: 2024Q2

REPORT INFORMATION
  Report Type: Spontaneous
  Country: US (occurrence: US)
  Receive Date: 20240415
  Receipt Date: 20240415
  Transmission Date: 20240716
  Serious: No
  Sender: FDA-Public Use
  Company Number: US-GSKCCFUS-Case-01980914_AE-109994

PATIENT
  Age: 82 Year
  Sex: Female

DRUGS (1)
  1. ANORO ELLIPTA [Suspect]
     Active Substance: UMECLIDINIUM BROMIDE\VILANTEROL TRIFENATATE
     Indication: Product used for unknown indication
     Dosage: UNK

REACTIONS (6)
  - Dry mouth [Unknown]
  - Lip swelling [Unknown]
  - Dysphonia [Unknown]
  - Dizziness [Unknown]
  - Headache [Unknown]
  - Ocular discomfort [Unknown]
